FAERS Safety Report 5843636-3 (Version None)
Quarter: 2008Q3

REPORT INFORMATION
  Report Type: 
  Country: None (occurrence: None)
  Receive Date: 20080813
  Receipt Date: 20080711
  Transmission Date: 20090109
  Serious: No
  Sender: FDA-Public Use
  Company Number: A0738067A

PATIENT
  Age: 85 Year
  Sex: Male

DRUGS (3)
  1. COREG CR [Suspect]
     Dosage: 20MG PER DAY
     Route: 048
     Dates: start: 20080704
  2. LIPITOR [Concomitant]
  3. COUMADIN [Concomitant]

REACTIONS (1)
  - PERIPHERAL COLDNESS [None]
